FAERS Safety Report 21508224 (Version 7)
Quarter: 2023Q1

REPORT INFORMATION
  Report Type: Spontaneous
  Country: JP (occurrence: JP)
  Receive Date: 20221026
  Receipt Date: 20230321
  Transmission Date: 20230418
  Serious: Yes (Other)
  Sender: FDA-Public Use
  Company Number: JP-ONO-2022JP027939

PATIENT
  Age: 66 Year
  Sex: Female
  Weight: 43.5 kg

DRUGS (9)
  1. BRAFTOVI [Suspect]
     Active Substance: ENCORAFENIB
     Indication: Colon cancer
     Dosage: 300 MG, EVERYDAY
     Route: 048
     Dates: start: 20221006, end: 20221007
  2. BRAFTOVI [Suspect]
     Active Substance: ENCORAFENIB
     Dosage: 225 MG, EVERYDAY
     Route: 048
     Dates: start: 20221017, end: 20221018
  3. BRAFTOVI [Suspect]
     Active Substance: ENCORAFENIB
     Dosage: UNK UNK, EVERYDAY
     Route: 048
     Dates: start: 20221019, end: 20221020
  4. BRAFTOVI [Suspect]
     Active Substance: ENCORAFENIB
     Dosage: 225 MG, EVERYDAY
     Route: 048
     Dates: start: 20221031
  5. MEKTOVI [Suspect]
     Active Substance: BINIMETINIB
     Indication: Colon cancer
     Dosage: 45 MG, Q12H
     Route: 048
     Dates: start: 20221006, end: 20221007
  6. MEKTOVI [Suspect]
     Active Substance: BINIMETINIB
     Dosage: 30 MG, Q12H
     Route: 048
     Dates: start: 20221017, end: 20221018
  7. ERBITUX [Suspect]
     Active Substance: CETUXIMAB
     Indication: Colon cancer
     Dosage: UNK
     Route: 041
     Dates: start: 20221006, end: 20221020
  8. ERBITUX [Suspect]
     Active Substance: CETUXIMAB
     Dosage: UNK
     Route: 041
     Dates: start: 20221027
  9. NICARDIPINE HYDROCHLORIDE [Concomitant]
     Active Substance: NICARDIPINE HYDROCHLORIDE
     Indication: Chest discomfort
     Dosage: UNK MILLILITRE PER HOUR
     Route: 041
     Dates: start: 20221006

REACTIONS (3)
  - Central serous chorioretinopathy [Recovered/Resolved]
  - Central serous chorioretinopathy [Recovered/Resolved]
  - Pyrexia [Recovered/Resolved]

NARRATIVE: CASE EVENT DATE: 20221007
